FAERS Safety Report 7381824-8 (Version None)
Quarter: 2011Q1

REPORT INFORMATION
  Report Type: 
  Country: None (occurrence: None)
  Receive Date: 20110329
  Receipt Date: 20110316
  Transmission Date: 20110831
  Serious: Yes (Hospitalization)
  Sender: FDA-Public Use
  Company Number: PHHY2011IT21040

PATIENT
  Age: 46 Year
  Sex: Female

DRUGS (4)
  1. MUTABON-F [Suspect]
     Route: 048
     Dates: start: 20110218, end: 20110218
  2. LORAZEPAM [Suspect]
     Dosage: 1 MG, UNK
     Route: 048
     Dates: start: 20110218, end: 20110218
  3. HALDOL [Suspect]
     Dosage: 5 MG, UNK
     Route: 048
     Dates: start: 20110218, end: 20110218
  4. LAMICTAL [Suspect]
     Dosage: 100 MG, UNK
     Route: 048
     Dates: start: 20110218, end: 20110218

REACTIONS (5)
  - VOMITING [None]
  - SELF INJURIOUS BEHAVIOUR [None]
  - COMA [None]
  - RESPIRATORY FAILURE [None]
  - BRADYPNOEA [None]
